FAERS Safety Report 6735125-9 (Version None)
Quarter: 2010Q2

REPORT INFORMATION
  Report Type: 
  Country: None (occurrence: None)
  Receive Date: 20100519
  Receipt Date: 20100519
  Transmission Date: 20101027
  Serious: No
  Sender: FDA-Public Use
  Company Number: None

PATIENT
  Age: 61 Year
  Sex: Female
  Weight: 77.5651 kg

DRUGS (1)
  1. ZICAM NASAL SPRAY [Suspect]
     Dosage: MINIMUM DOSE AS PRESCRIBED
     Dates: start: 20060101, end: 20081030

REACTIONS (2)
  - AGEUSIA [None]
  - ANOSMIA [None]
